FAERS Safety Report 8434916-6 (Version None)
Quarter: 2012Q2

REPORT INFORMATION
  Report Type: 
  Country: None (occurrence: None)
  Receive Date: 20120614
  Receipt Date: 20120605
  Transmission Date: 20120825
  Serious: Yes (Other)
  Sender: FDA-Public Use
  Company Number: US-PFIZER INC-2012136096

PATIENT
  Age: 57 Year
  Sex: Male

DRUGS (3)
  1. TESTOSTERONE [Concomitant]
     Indication: ANDROGEN REPLACEMENT THERAPY
     Dosage: UNK
  2. CIALIS [Suspect]
     Indication: ERECTILE DYSFUNCTION
     Dosage: UNK
     Dates: start: 20120531
  3. VIAGRA [Suspect]
     Indication: ERECTILE DYSFUNCTION
     Dosage: UNK
     Route: 048
     Dates: start: 20120601

REACTIONS (1)
  - MYOCARDIAL INFARCTION [None]
